FAERS Safety Report 8105041-9 (Version None)
Quarter: 2012Q1

REPORT INFORMATION
  Report Type: 
  Country: None (occurrence: None)
  Receive Date: 20120130
  Receipt Date: 20120124
  Transmission Date: 20120608
  Serious: Yes (Disabling, Other)
  Sender: FDA-Public Use
  Company Number: GB-ROCHE-1033406

PATIENT
  Sex: Female
  Weight: 49.6 kg

DRUGS (3)
  1. METHOTREXATE [Concomitant]
  2. HYDROXYCHLOROQUINE SULFATE [Concomitant]
  3. MABTHERA [Suspect]
     Indication: RHEUMATOID ARTHRITIS
     Dates: start: 20110218

REACTIONS (2)
  - FALL [None]
  - FOOT FRACTURE [None]
